FAERS Safety Report 7573944-X (Version None)
Quarter: 2011Q2

REPORT INFORMATION
  Report Type: 
  Country: None (occurrence: None)
  Receive Date: 20110621
  Receipt Date: 20110613
  Transmission Date: 20111010
  Serious: Yes (Hospitalization, Other)
  Sender: FDA-Public Use
  Company Number: WAES 1103USA02616

PATIENT
  Age: 41 Year
  Sex: Female

DRUGS (11)
  1. COLACE [Concomitant]
  2. KEPPRA [Concomitant]
  3. NORCO [Concomitant]
  4. LANTUS [Concomitant]
  5. METFORMIN HCL [Concomitant]
  6. DECADRON [Suspect]
     Dosage: 2 MG/DAILY/PO
     Route: 048
     Dates: start: 20101019
  7. ARIXTRA [Concomitant]
  8. FENTANYL [Concomitant]
  9. BACTRIM [Concomitant]
  10. CELEXA [Concomitant]
  11. NEXIUM [Concomitant]

REACTIONS (4)
  - SPINAL CORD COMPRESSION [None]
  - LEUKOENCEPHALOPATHY [None]
  - SPINAL COMPRESSION FRACTURE [None]
  - EXTRADURAL ABSCESS [None]
